FAERS Safety Report 5749879-1 (Version None)
Quarter: 2008Q2

REPORT INFORMATION
  Report Type: 
  Country: None (occurrence: None)
  Receive Date: 20080527
  Receipt Date: 20080515
  Transmission Date: 20081010
  Serious: Yes (Other)
  Sender: FDA-Public Use
  Company Number: CN-ROCHE-565812

PATIENT
  Age: 71 Year
  Sex: Female
  Weight: 45 kg

DRUGS (2)
  1. ROCALTROL [Suspect]
     Route: 048
     Dates: start: 20050901
  2. CHINESE MEDICINE NOS [Concomitant]
     Dosage: DRUG: CHAO NENG GAI
     Route: 048
     Dates: start: 20050901

REACTIONS (5)
  - DRUG INEFFECTIVE [None]
  - GAIT DISTURBANCE [None]
  - HEART RATE INCREASED [None]
  - MUSCULAR WEAKNESS [None]
  - OSTEOPOROSIS [None]
